FAERS Safety Report 6128187-3 (Version None)
Quarter: 2009Q1

REPORT INFORMATION
  Report Type: 
  Country: None (occurrence: None)
  Receive Date: 20090323
  Receipt Date: 20090311
  Transmission Date: 20090719
  Serious: Yes (Hospitalization)
  Sender: FDA-Public Use
  Company Number: GB-ROCHE-621515

PATIENT
  Sex: Female

DRUGS (5)
  1. ORLISTAT [Suspect]
     Indication: OBESITY
     Route: 048
     Dates: start: 20081205
  2. LANSOPRAZOLE [Concomitant]
     Route: 048
     Dates: start: 20070101
  3. ARIPIPRAZOLE [Concomitant]
     Indication: DEPRESSION
     Route: 048
  4. NULYTELY [Concomitant]
     Indication: IRRITABLE BOWEL SYNDROME
     Dosage: DOSAGE: UNCERTAIN
     Route: 048
  5. LACTULOSE [Concomitant]
     Indication: CONSTIPATION
     Dosage: DOSAGE: AS REQUIRED
     Route: 048

REACTIONS (2)
  - FALL [None]
  - UPPER LIMB FRACTURE [None]
